FAERS Safety Report 9327281 (Version 3)
Quarter: 2015Q3

REPORT INFORMATION
  Report Type: Spontaneous
  Country: US (occurrence: US)
  Receive Date: 20130604
  Receipt Date: 20150722
  Transmission Date: 20151125
  Serious: Yes (Death)
  Sender: FDA-Public Use
  Company Number: US-PFIZER INC-2013168838

PATIENT
  Age: 54 Year
  Sex: Female
  Weight: 74.83 kg

DRUGS (2)
  1. LYRICA [Suspect]
     Active Substance: PREGABALIN
     Dosage: 600 MG, DAILY (A DAY)
     Route: 048
  2. LYRICA [Suspect]
     Active Substance: PREGABALIN
     Indication: NEUROPATHY PERIPHERAL
     Dosage: 125 MG (TAKING 50MG AND 75MG TOGETHER), 3X/DAY
     Route: 048
     Dates: start: 200909

REACTIONS (4)
  - Drug effect incomplete [Unknown]
  - Disease progression [Fatal]
  - Hodgkin^s disease [Fatal]
  - Weight increased [Unknown]
